FAERS Safety Report 9700721 (Version 1)
Quarter: 2013Q4

REPORT INFORMATION
  Report Type: Spontaneous
  Country: CA (occurrence: None)
  Receive Date: 20131119
  Receipt Date: 20131119
  Transmission Date: 20140711
  Serious: Yes (Other)
  Sender: FDA-Public Use
  Company Number: A1049403A

PATIENT
  Age: 63 Year
  Sex: Male

DRUGS (1)
  1. SODIUM FLUORIDE TOOTHPASTE (SODIUM FLUORIDE) [Suspect]
     Indication: DENTAL CARE
     Route: 004

REACTIONS (3)
  - Angioedema [None]
  - Hypersensitivity [None]
  - Swollen tongue [None]
